FAERS Safety Report 18399627 (Version 4)
Quarter: 2020Q4

REPORT INFORMATION
  Report Type: Report from Study
  Country: TR (occurrence: TR)
  Receive Date: 20201019
  Receipt Date: 20201030
  Transmission Date: 20210114
  Serious: Yes (Death, Hospitalization)
  Sender: FDA-Public Use
  Company Number: TR-ROCHE-2697015

PATIENT
  Age: 74 Year
  Sex: Male
  Weight: 60 kg

DRUGS (15)
  1. CIPROFLOXACIN. [Concomitant]
     Active Substance: CIPROFLOXACIN
     Route: 042
     Dates: start: 20200930, end: 20201008
  2. GEMCITABINE. [Suspect]
     Active Substance: GEMCITABINE
     Dosage: ON 22/APR/2020, HE RECEIVED MOST RECENT DOSE OF GEMCITABINE
     Route: 042
     Dates: start: 20200325
  3. PAROL [Concomitant]
     Active Substance: ACETAMINOPHEN
     Indication: PAIN
     Route: 042
     Dates: start: 20200302, end: 20200325
  4. PANTPAS [Concomitant]
     Active Substance: PANTOPRAZOLE SODIUM
     Route: 042
     Dates: start: 20200930
  5. FLAGYL [Concomitant]
     Active Substance: METRONIDAZOLE\METRONIDAZOLE HYDROCHLORIDE
     Route: 042
     Dates: start: 20200930, end: 20201008
  6. ALDACTONE [Concomitant]
     Active Substance: SPIRONOLACTONE
     Route: 048
     Dates: start: 20200930
  7. CARBOPLATIN. [Suspect]
     Active Substance: CARBOPLATIN
     Indication: MALIGNANT NEOPLASM OF UNKNOWN PRIMARY SITE
     Dosage: AT THE AREA UNDER THE CURVE (AUC) DOSE ONCE EVERY 3 WEEKS FOR UP TO 9 CYCLES.
     Route: 042
     Dates: start: 20200130
  8. MEGACE [Concomitant]
     Active Substance: MEGESTROL ACETATE
     Indication: DECREASED APPETITE
     Route: 048
     Dates: start: 20200422
  9. PAROL [Concomitant]
     Active Substance: ACETAMINOPHEN
     Route: 042
     Dates: start: 20200930
  10. GEMCITABINE. [Suspect]
     Active Substance: GEMCITABINE
     Indication: MALIGNANT NEOPLASM OF UNKNOWN PRIMARY SITE
     Dosage: FOR UP TO 9 CYCLES. 1890 MG
     Route: 042
     Dates: start: 20200207
  11. DESEFIN [Concomitant]
     Active Substance: CEFTRIAXONE SODIUM
     Route: 042
     Dates: start: 20200830
  12. ATEZOLIZUMAB. [Suspect]
     Active Substance: ATEZOLIZUMAB
     Indication: MALIGNANT NEOPLASM OF UNKNOWN PRIMARY SITE
     Dosage: ON 23/SEP/2020, HE RECEIVED MOST RECENT DOSE OF ATEZOLIZUMAB 1200 MG
     Route: 042
     Dates: start: 20200923
  13. CARBOPLATIN. [Suspect]
     Active Substance: CARBOPLATIN
     Dosage: ON 22/APR/2020, HE RECEIVED MOST RECENT DOSE OF CARBOPLATIN 400 MG
     Route: 042
     Dates: start: 20200325
  14. KYTRIL [Concomitant]
     Active Substance: GRANISETRON HYDROCHLORIDE
     Indication: NAUSEA
     Route: 042
     Dates: start: 20200302, end: 20200325
  15. PANTPAS [Concomitant]
     Active Substance: PANTOPRAZOLE SODIUM
     Indication: GASTROOESOPHAGEAL REFLUX DISEASE
     Route: 042
     Dates: start: 20200302, end: 20200325

REACTIONS (1)
  - Oesophageal varices haemorrhage [Fatal]

NARRATIVE: CASE EVENT DATE: 20201012
